FAERS Safety Report 19810028 (Version 1)
Quarter: 2021Q3

REPORT INFORMATION
  Report Type: Spontaneous
  Country: US (occurrence: US)
  Receive Date: 20210909
  Receipt Date: 20210909
  Transmission Date: 20211014
  Serious: No
  Sender: FDA-Public Use
  Company Number: None

PATIENT
  Sex: Female
  Weight: 64.8 kg

DRUGS (22)
  1. CAPECITABINE TABLETS [Suspect]
     Active Substance: CAPECITABINE
     Indication: PANCREATIC CARCINOMA
     Dosage: ?          OTHER FREQUENCY:BID 14 OF 21 DAYS;?
     Route: 048
  2. AUGMENTIN [Concomitant]
     Active Substance: AMOXICILLIN\CLAVULANATE POTASSIUM
  3. COLACE CLEAR [Concomitant]
     Active Substance: DOCUSATE SODIUM
  4. GEMZAR [Concomitant]
     Active Substance: GEMCITABINE HYDROCHLORIDE
  5. ONDANSETRON [Concomitant]
     Active Substance: ONDANSETRON
  6. PROCHLORPERAZINE. [Concomitant]
     Active Substance: PROCHLORPERAZINE
  7. CITALOPRAM [Concomitant]
     Active Substance: CITALOPRAM HYDROBROMIDE
  8. FLUTICASONE. [Concomitant]
     Active Substance: FLUTICASONE
  9. CREON [Concomitant]
     Active Substance: PANCRELIPASE AMYLASE\PANCRELIPASE LIPASE\PANCRELIPASE PROTEASE
  10. PANTOPRAZOLE [Concomitant]
     Active Substance: PANTOPRAZOLE
  11. STOOL SOFTNER [Concomitant]
  12. CAPECITABINE TABLETS [Suspect]
     Active Substance: CAPECITABINE
     Indication: PANCREATIC CARCINOMA
     Dosage: ?          OTHER FREQUENCY:BID DAYS 1?14 / 21;?
     Route: 048
  13. ALPRAZOLAM. [Concomitant]
     Active Substance: ALPRAZOLAM
  14. LEVOTHYROXINE. [Concomitant]
     Active Substance: LEVOTHYROXINE
  15. LIDOCAINE?PRILOCAINE [Concomitant]
     Active Substance: LIDOCAINE\PRILOCAINE
  16. METOPROLOL. [Concomitant]
     Active Substance: METOPROLOL
  17. NIFEDIPINE. [Concomitant]
     Active Substance: NIFEDIPINE
  18. TYLENOL WITH CODEIENE [Concomitant]
  19. ASPIRIN 81 [Concomitant]
     Active Substance: ASPIRIN
  20. ATORVASTATIN [Concomitant]
     Active Substance: ATORVASTATIN
  21. CLOBETASOL [Concomitant]
     Active Substance: CLOBETASOL
  22. UREA 10 HYDRATING [Concomitant]

REACTIONS (1)
  - Hospice care [None]
